FAERS Safety Report 25503834 (Version 2)
Quarter: 2025Q3

REPORT INFORMATION
  Report Type: Spontaneous
  Country: AU (occurrence: AU)
  Receive Date: 20250702
  Receipt Date: 20250804
  Transmission Date: 20251021
  Serious: Yes (Life-Threatening)
  Sender: MYLAN
  Company Number: AU-MYLANLABS-2025M1055096

PATIENT

DRUGS (8)
  1. RIFAMPIN [Suspect]
     Active Substance: RIFAMPIN
     Indication: Antibiotic therapy
     Route: 065
  2. RIFAMPIN [Suspect]
     Active Substance: RIFAMPIN
  3. RIFAMPIN [Suspect]
     Active Substance: RIFAMPIN
  4. RIFAMPIN [Suspect]
     Active Substance: RIFAMPIN
     Route: 065
  5. RIFAMPIN [Suspect]
     Active Substance: RIFAMPIN
     Route: 065
  6. RIFAMPIN [Suspect]
     Active Substance: RIFAMPIN
  7. RIFAMPIN [Suspect]
     Active Substance: RIFAMPIN
  8. RIFAMPIN [Suspect]
     Active Substance: RIFAMPIN
     Route: 065

REACTIONS (2)
  - Anaphylactic reaction [Unknown]
  - Product quality issue [Unknown]

NARRATIVE: CASE EVENT DATE: 20250101
